FAERS Safety Report 4413346-8 (Version None)
Quarter: 2004Q3

REPORT INFORMATION
  Report Type: 
  Country: None (occurrence: None)
  Receive Date: 20040729
  Receipt Date: 20040715
  Transmission Date: 20050211
  Serious: No
  Sender: FDA-Public Use
  Company Number: 2004US-00337

PATIENT
  Sex: Male

DRUGS (2)
  1. LORAZEPAM [Suspect]
     Indication: ANXIETY
     Dosage: 2 MG, Q1H, ORAL
     Route: 048
     Dates: start: 20040201
  2. LORTAB [Concomitant]

REACTIONS (1)
  - CONVULSION [None]
